FAERS Safety Report 9404339 (Version 1)
Quarter: 2013Q3

REPORT INFORMATION
  Report Type: Spontaneous
  Country: US (occurrence: None)
  Receive Date: 20130715
  Receipt Date: 20130715
  Transmission Date: 20140515
  Serious: Yes (Other)
  Sender: FDA-Public Use
  Company Number: SIM_00498_2013

PATIENT
  Age: 73 Year
  Sex: Female
  Weight: 77.11 kg

DRUGS (2)
  1. DRY EYE RELIEF (HOMEOPATHIC) [Suspect]
     Indication: PRODUCT USED FOR UNKNOWN INDICATION
     Dosage: (DROPS/SEVERAL TIMES AS NEED [ALTERNATING WITH THERA TEARS]/OPHTHALMIC)
     Route: 047
     Dates: start: 20130627, end: 20130628
  2. THERA TEARS [Suspect]
     Indication: PRODUCT USED FOR UNKNOWN INDICATION
     Dosage: {ALTERNAING WITH DRY EYE RELIEF]/OPHTHALMIC)
     Route: 047
     Dates: start: 20130627

REACTIONS (5)
  - Eye irritation [None]
  - Vision blurred [None]
  - Eye burns [None]
  - Chemical injury [None]
  - Eye injury [None]
